FAERS Safety Report 9829696 (Version 3)
Quarter: 2014Q1

REPORT INFORMATION
  Report Type: Report from Study
  Country: GR (occurrence: GR)
  Receive Date: 20140120
  Receipt Date: 20140212
  Transmission Date: 20141002
  Serious: Yes (Hospitalization)
  Sender: FDA-Public Use
  Company Number: GR-ROCHE-1334551

PATIENT
  Age: 89 Year
  Sex: Male
  Weight: 70 kg

DRUGS (5)
  1. VISMODEGIB [Suspect]
     Indication: BASAL CELL CARCINOMA
     Dosage: DATE OF LAST DOSE PRIOR TO SAE: 14/DEC/2013
     Route: 048
     Dates: start: 20130703
  2. ALLOPURINOL [Concomitant]
     Indication: BLOOD URIC ACID INCREASED
     Route: 065
     Dates: start: 200301
  3. LERCANIDIPINE [Concomitant]
     Indication: HYPERTENSION
     Route: 065
     Dates: start: 200301
  4. ATORVASTATIN [Concomitant]
     Indication: HYPERCHOLESTEROLAEMIA
     Route: 065
     Dates: start: 200301
  5. HYDROCHLOROTHIAZIDE/RAMIPRIL [Concomitant]
     Indication: HYPERTENSION
     Dosage: TOTAL DAILY DOSE: 25 MG/ 5 MG
     Route: 065
     Dates: start: 200301

REACTIONS (1)
  - Respiratory tract infection [Recovered/Resolved with Sequelae]
